FAERS Safety Report 8226339 (Version 2)
Quarter: 2013Q2

REPORT INFORMATION
  Report Type: Spontaneous
  Country: US (occurrence: US)
  Receive Date: 20111103
  Receipt Date: 20130423
  Transmission Date: 20140414
  Serious: Yes (Other)
  Sender: FDA-Public Use
  Company Number: US-ROCHE-791271

PATIENT
  Age: 21 Year
  Sex: Male
  Weight: 79.45 kg

DRUGS (4)
  1. ACCUTANE [Suspect]
     Indication: ACNE
     Route: 048
     Dates: start: 19990108, end: 19990324
  2. ACCUTANE [Suspect]
     Route: 048
     Dates: start: 19991229, end: 20000526
  3. ACCUTANE [Suspect]
     Route: 048
     Dates: start: 20001122, end: 20010309
  4. ACCUTANE [Suspect]
     Route: 048
     Dates: start: 20011228, end: 20020601

REACTIONS (5)
  - Colitis ulcerative [Unknown]
  - Inflammatory bowel disease [Unknown]
  - Pelvic abscess [Unknown]
  - Emotional distress [Unknown]
  - Blood triglycerides increased [Unknown]
